FAERS Safety Report 7806491-8 (Version None)
Quarter: 2011Q4

REPORT INFORMATION
  Report Type: 
  Country: None (occurrence: None)
  Receive Date: 20111011
  Receipt Date: 20110930
  Transmission Date: 20120403
  Serious: Yes (Death)
  Sender: FDA-Public Use
  Company Number: DE-GENZYME-CLOF-1001509

PATIENT
  Sex: Male
  Weight: 33 kg

DRUGS (9)
  1. EVOLTRA [Suspect]
     Indication: ACUTE LYMPHOCYTIC LEUKAEMIA
     Dosage: UNK
     Route: 065
  2. EVOLTRA [Suspect]
     Dosage: 30 MG QDX4
     Route: 042
     Dates: start: 20110110, end: 20110113
  3. ETOPOSIDE [Suspect]
     Indication: ACUTE LYMPHOCYTIC LEUKAEMIA
     Dosage: CYCLE 1
     Route: 065
  4. CYCLOSPORINE [Suspect]
     Indication: ACUTE LYMPHOCYTIC LEUKAEMIA
     Dosage: CYCLE 1
     Route: 065
  5. MEPERIDINE HCL [Concomitant]
     Indication: PAIN
     Dosage: 100 MG, UNK
     Dates: start: 20110312
  6. CYCLOSPORINE [Suspect]
     Dosage: CYCLE 2
     Route: 065
  7. LASIX [Concomitant]
     Indication: DIURETIC THERAPY
     Dosage: 30 MG, UNK
     Dates: start: 20110313
  8. EVOLTRA [Suspect]
     Dosage: 40 MG, QDX5
     Route: 042
     Dates: start: 20101206, end: 20101210
  9. ETOPOSIDE [Suspect]
     Dosage: CYCLE 2
     Route: 065

REACTIONS (2)
  - BONE MARROW FAILURE [None]
  - ADENOVIRUS INFECTION [None]
